FAERS Safety Report 14862046 (Version 2)
Quarter: 2018Q2

REPORT INFORMATION
  Report Type: Spontaneous
  Country: BR (occurrence: BR)
  Receive Date: 20180508
  Receipt Date: 20180524
  Transmission Date: 20180711
  Serious: Yes (Hospitalization, Other)
  Sender: FDA-Public Use
  Company Number: BR-BRISTOL-MYERS SQUIBB COMPANY-BMS-2018-040736

PATIENT
  Age: 81 Year
  Sex: Female

DRUGS (5)
  1. ALDACTONE [Concomitant]
     Active Substance: SPIRONOLACTONE
     Indication: HYPERTENSION
     Dosage: 0.5 TAB, QD
     Route: 048
  2. TREZOR                             /00382002/ [Concomitant]
     Indication: PRODUCT USED FOR UNKNOWN INDICATION
     Dosage: 1 TAB, DAILY
     Route: 048
  3. ELIQUIS [Suspect]
     Active Substance: APIXABAN
     Indication: THROMBOSIS PROPHYLAXIS
     Dosage: 2.5 MG, BID
     Route: 048
     Dates: start: 201611
  4. ELIQUIS [Suspect]
     Active Substance: APIXABAN
     Indication: PRODUCT USED FOR UNKNOWN INDICATION
     Dosage: 5 MG, BID
     Route: 048
     Dates: start: 201803
  5. NEBILET [Concomitant]
     Active Substance: NEBIVOLOL
     Indication: ARRHYTHMIA
     Dosage: 0.5 TAB, BID
     Route: 048

REACTIONS (6)
  - Thrombosis [Recovered/Resolved]
  - Prescribed overdose [Unknown]
  - Dyspnoea [Recovered/Resolved]
  - Product use issue [Unknown]
  - Mitral valve disease [Recovered/Resolved]
  - Bacterial infection [Recovered/Resolved]

NARRATIVE: CASE EVENT DATE: 201611
